FAERS Safety Report 14506094 (Version 1)
Quarter: 2018Q1

REPORT INFORMATION
  Report Type: Spontaneous
  Country: NO (occurrence: NO)
  Receive Date: 20180208
  Receipt Date: 20180208
  Transmission Date: 20180509
  Serious: Yes (Other)
  Sender: FDA-Public Use
  Company Number: NO-CELLTRION INC.-2017NO009134

PATIENT

DRUGS (1)
  1. INFLECTRA [Suspect]
     Active Substance: INFLIXIMAB-DYYB
     Indication: CROHN^S DISEASE
     Dosage: EVERY 8TH WEEK
     Route: 042
     Dates: start: 201606

REACTIONS (5)
  - Rash [Unknown]
  - Hepatic failure [Not Recovered/Not Resolved]
  - Amnesia [Unknown]
  - Jaundice [Unknown]
  - Confusional state [Unknown]

NARRATIVE: CASE EVENT DATE: 20160607
